FAERS Safety Report 8538100-7 (Version None)
Quarter: 2012Q3

REPORT INFORMATION
  Report Type: 
  Country: None (occurrence: None)
  Receive Date: 20120725
  Receipt Date: 20120718
  Transmission Date: 20120928
  Serious: Yes (Other)
  Sender: FDA-Public Use
  Company Number: JP-009507513-1207JPN008115

PATIENT

DRUGS (9)
  1. TELAPREVIR [Suspect]
     Indication: HEPATITIS C
     Route: 048
     Dates: start: 20120409, end: 20120605
  2. ALLOPURINOL [Concomitant]
     Indication: PROPHYLAXIS
     Route: 048
     Dates: start: 20120414
  3. PEG-INTRON [Suspect]
     Indication: HEPATITIS C
     Dosage: 1.5MCG/KG/WEEK
     Route: 058
     Dates: start: 20120409, end: 20120613
  4. REBETOL [Suspect]
     Route: 048
     Dates: start: 20120427, end: 20120508
  5. REBETOL [Suspect]
     Route: 048
     Dates: start: 20120509, end: 20120522
  6. REBETOL [Suspect]
     Route: 048
     Dates: start: 20120523, end: 20120523
  7. REBETOL [Suspect]
     Route: 048
  8. REBETOL [Suspect]
     Indication: HEPATITIS C
     Route: 048
     Dates: start: 20120409, end: 20120426
  9. URSO 250 [Concomitant]
     Indication: HEPATITIS C
     Route: 048
     Dates: start: 20080401

REACTIONS (1)
  - ANAEMIA [None]
